FAERS Safety Report 15388976 (Version 2)
Quarter: 2018Q3

REPORT INFORMATION
  Report Type: Report from Study
  Country: US (occurrence: US)
  Receive Date: 20180917
  Receipt Date: 20180918
  Transmission Date: 20181010
  Serious: Yes (Death, Other)
  Sender: FDA-Public Use
  Company Number: US-AUROBINDO-AUR-APL-2018-045761

PATIENT
  Age: 14 Year
  Sex: Male

DRUGS (3)
  1. FLUOXETINE [Suspect]
     Active Substance: FLUOXETINE HYDROCHLORIDE
     Indication: PRODUCT USED FOR UNKNOWN INDICATION
     Dosage: UNK
     Route: 065
  2. MECLIZINE [Suspect]
     Active Substance: MECLIZINE HYDROCHLORIDE
     Indication: PRODUCT USED FOR UNKNOWN INDICATION
     Dosage: UNK
     Route: 065
  3. BUPROPION. [Suspect]
     Active Substance: BUPROPION
     Indication: PRODUCT USED FOR UNKNOWN INDICATION
     Dosage: UNK
     Route: 065

REACTIONS (14)
  - Electrocardiogram QT prolonged [Fatal]
  - Coma [Fatal]
  - Hyperreflexia [Fatal]
  - Tremor [Fatal]
  - Tachycardia [Fatal]
  - Depressed level of consciousness [Fatal]
  - Hypotension [Fatal]
  - Bradypnoea [Fatal]
  - Bradycardia [Fatal]
  - Agitation [Fatal]
  - Rhabdomyolysis [Fatal]
  - Ventricular arrhythmia [Fatal]
  - Seizure [Fatal]
  - Pneumonia aspiration [Fatal]
